FAERS Safety Report 9187669 (Version 2)
Quarter: 2013Q1

REPORT INFORMATION
  Report Type: Spontaneous
  Country: JP (occurrence: JP)
  Receive Date: 20130325
  Receipt Date: 20130327
  Transmission Date: 20140127
  Serious: Yes (Death, Other)
  Sender: FDA-Public Use
  Company Number: JP-ELI_LILLY_AND_COMPANY-JP201302007110

PATIENT
  Age: 67 Year
  Sex: Male
  Weight: 48 kg

DRUGS (13)
  1. ZYPREXA [Suspect]
     Indication: PSYCHOTIC DISORDER DUE TO A GENERAL MEDICAL CONDITION
     Dosage: 5 MG, QD
     Route: 048
     Dates: start: 20120912, end: 20121002
  2. ZYPREXA [Suspect]
     Dosage: 10 MG, QD
     Route: 048
     Dates: start: 20121003, end: 20130108
  3. ZYPREXA [Suspect]
     Dosage: 15 MG, QD
     Route: 048
     Dates: start: 20130109, end: 20130115
  4. ZYPREXA [Suspect]
     Dosage: 20 MG, QD
     Route: 048
     Dates: start: 20130116, end: 20130212
  5. ZYPREXA [Suspect]
     Dosage: 15 MG, QD
     Route: 048
     Dates: start: 20130213
  6. DEPAKENE [Concomitant]
     Dosage: UNK
     Route: 048
     Dates: start: 20120912, end: 20121002
  7. DEPAKENE [Concomitant]
     Dosage: UNK
     Route: 048
     Dates: start: 20121003
  8. SEROQUEL [Concomitant]
     Dosage: UNK
     Route: 048
     Dates: start: 20120912, end: 20121002
  9. SEROQUEL [Concomitant]
     Dosage: UNK
     Route: 048
     Dates: start: 20121003
  10. LENDORMIN [Concomitant]
     Dosage: UNK
     Dates: start: 20120912
  11. DESYREL [Concomitant]
     Dosage: UNK
     Dates: start: 20120919, end: 20130212
  12. DESYREL [Concomitant]
     Dosage: UNK
     Dates: start: 20130213
  13. RISPERDAL [Concomitant]

REACTIONS (5)
  - Cardiac disorder [Fatal]
  - Corneal oedema [Not Recovered/Not Resolved]
  - Corneal disorder [Not Recovered/Not Resolved]
  - Off label use [Recovered/Resolved]
  - Hallucination, visual [Unknown]
